FAERS Safety Report 12328870 (Version 1)
Quarter: 2016Q2

REPORT INFORMATION
  Report Type: Spontaneous
  Country: US (occurrence: US)
  Receive Date: 20160503
  Receipt Date: 20160503
  Transmission Date: 20160815
  Serious: No
  Sender: FDA-Public Use
  Company Number: US-BEH-2015051409

PATIENT
  Sex: Male
  Weight: 87 kg

DRUGS (22)
  1. FERROUS SULFATE. [Concomitant]
     Active Substance: FERROUS SULFATE
     Dosage: 1 TAB TWICE A DAY
     Route: 048
  2. PROGRAF [Concomitant]
     Active Substance: TACROLIMUS\TACROLIMUS ANHYDROUS
     Route: 048
  3. DIPHENHYDRAMINE. [Concomitant]
     Active Substance: DIPHENHYDRAMINE
     Dosage: 25 MG AS DIRECTED
     Route: 048
  4. EPIPEN [Concomitant]
     Active Substance: EPINEPHRINE
     Indication: ANAPHYLACTIC REACTION
     Route: 030
  5. CRESTOR [Concomitant]
     Active Substance: ROSUVASTATIN CALCIUM
     Route: 048
  6. CARDIZEM [Concomitant]
     Active Substance: DILTIAZEM HYDROCHLORIDE
     Dosage: 1 CAP DAILY
     Route: 048
  7. METOPROLOL. [Concomitant]
     Active Substance: METOPROLOL
     Route: 048
  8. ACETAMINOPHEN. [Concomitant]
     Active Substance: ACETAMINOPHEN
     Dosage: 325 MG PRIOR TO INFUSION
     Route: 048
  9. AZITHROMYCIN ANHYDROUS. [Concomitant]
     Active Substance: AZITHROMYCIN ANHYDROUS
     Dosage: 1 DOSE EVERY OTHER DAY AS DIRECTED
  10. PLAVIX [Concomitant]
     Active Substance: CLOPIDOGREL BISULFATE
     Route: 048
  11. TRIAMCINOLONE [Concomitant]
     Active Substance: TRIAMCINOLONE
     Dosage: 1 DOSE AS DIRECTED
     Route: 061
  12. PREDNISONE. [Concomitant]
     Active Substance: PREDNISONE
     Route: 048
  13. ASPIRIN. [Concomitant]
     Active Substance: ASPIRIN
     Route: 048
  14. LIDOCAINE. [Concomitant]
     Active Substance: LIDOCAINE
     Dosage: 45 PRIOR TO INFUSION
     Route: 061
  15. TACROLIMUS. [Concomitant]
     Active Substance: TACROLIMUS
     Route: 048
  16. FOLIC ACID. [Concomitant]
     Active Substance: FOLIC ACID
  17. MAGNESIUM [Concomitant]
     Active Substance: MAGNESIUM
     Dosage: 3 TAB TWICE A DAY
     Route: 048
  18. PROTONIX [Concomitant]
     Active Substance: PANTOPRAZOLE SODIUM
     Route: 048
  19. KLONOPIN [Concomitant]
     Active Substance: CLONAZEPAM
     Route: 048
  20. MYFORTIC [Concomitant]
     Active Substance: MYCOPHENOLATE SODIUM
     Dosage: 3 TABS TICE A DAY
     Route: 048
  21. CALCIUM [Concomitant]
     Active Substance: CALCIUM
     Dosage: 1 TAB TWICE A DAY
     Route: 048
  22. HIZENTRA [Suspect]
     Active Substance: HUMAN IMMUNOGLOBULIN G
     Indication: IMMUNODEFICIENCY COMMON VARIABLE
     Dosage: 4 G 20 ML VIAL
     Route: 058

REACTIONS (1)
  - Infusion site bruising [Unknown]
